FAERS Safety Report 15157745 (Version 3)
Quarter: 2018Q3

REPORT INFORMATION
  Report Type: Spontaneous
  Country: US (occurrence: US)
  Receive Date: 20180718
  Receipt Date: 20180808
  Transmission Date: 20181010
  Serious: No
  Sender: FDA-Public Use
  Company Number: US-PFIZER INC-2015011646

PATIENT
  Age: 77 Year
  Sex: Female

DRUGS (26)
  1. LYRICA [Suspect]
     Active Substance: PREGABALIN
     Indication: HEADACHE
     Dosage: UNK, (75 MG, ONCE DAILY EVERY MORNING (AM) AND AT 100 MG, ONCE DAILY AT BEDTIME (HS)
     Route: 048
  2. BENAZEPRIL [Concomitant]
     Active Substance: BENAZEPRIL HYDROCHLORIDE
     Dosage: 20 MG, DAILY
  3. VITAMIN B12 [Concomitant]
     Active Substance: CYANOCOBALAMIN
     Dosage: 1 DF, DAILY
  4. CENTRUM SILVER [Concomitant]
     Active Substance: MINERALS\VITAMINS
     Dosage: 1 DF, DAILY
  5. PRAVASTATIN. [Concomitant]
     Active Substance: PRAVASTATIN
     Dosage: 1000 MG, DAILY
  6. MELOXICAM A [Concomitant]
     Dosage: 7.5 MG, DAILY
  7. SPIRONOLACTONE. [Concomitant]
     Active Substance: SPIRONOLACTONE
     Dosage: 0.25 MG, DAILY
  8. PREMARIN [Concomitant]
     Active Substance: ESTROGENS, CONJUGATED
     Indication: MENOPAUSE
  9. METOPROLOL. [Concomitant]
     Active Substance: METOPROLOL
     Dosage: 50 MG, 2X/DAY
  10. MAGNESIUM [Concomitant]
     Active Substance: MAGNESIUM
     Dosage: 250 MG, 3X/DAY
  11. LYRICA [Suspect]
     Active Substance: PREGABALIN
     Dosage: 50 MG, 3X/DAY
     Route: 048
  12. LEVOTHYROXINE. [Concomitant]
     Active Substance: LEVOTHYROXINE
     Dosage: 0.15 MG, WEEKLY (1 TAB 3X WEEKLY)
  13. ROPINIROLE. [Concomitant]
     Active Substance: ROPINIROLE
     Dosage: 0.75 MG, 2X/DAY (3 TABS 2 X DAILY)
  14. OMEPRAZOLE. [Concomitant]
     Active Substance: OMEPRAZOLE
     Dosage: 40 MG, DAILY
  15. ASA [Concomitant]
     Active Substance: ASPIRIN
     Dosage: 81 MG, DAILY
  16. IBUPROFEN. [Concomitant]
     Active Substance: IBUPROFEN
     Dosage: UNK, AS NEEDED
  17. PREMARIN [Concomitant]
     Active Substance: ESTROGENS, CONJUGATED
     Indication: OSTEOPOROSIS
     Dosage: 1.875 MG, WEEKLY (1 TABLET 3X WEEKLY)
     Route: 048
  18. LISINOPRIL. [Concomitant]
     Active Substance: LISINOPRIL
     Dosage: UNK
  19. METFORMIN [Concomitant]
     Active Substance: METFORMIN HYDROCHLORIDE
     Dosage: 1000 MG, DAILY
  20. VITAMIN D3 [Concomitant]
     Active Substance: CHOLECALCIFEROL
     Dosage: 1 DF, 3X/DAY
  21. OMEGA 3 [Concomitant]
     Active Substance: OMEGA-3 FATTY ACIDS
     Dosage: 1000 MG, DAILY
  22. FUROSEMIDE. [Concomitant]
     Active Substance: FUROSEMIDE
     Dosage: 20 MG, AS NEEDED
  23. FERROUS GLUCONATE [Concomitant]
     Active Substance: FERROUS GLUCONATE
     Dosage: 1 DF, DAILY
  24. LIVALO [Concomitant]
     Active Substance: PITAVASTATIN CALCIUM
     Dosage: UNK
  25. FLAXSEED [Concomitant]
     Active Substance: FLAX SEED
     Dosage: 1200 MG, DAILY
  26. VITAMIN C [Concomitant]
     Active Substance: ASCORBIC ACID
     Dosage: 1 DF, DAILY

REACTIONS (1)
  - Drug ineffective for unapproved indication [Unknown]
